FAERS Safety Report 5894901-5 (Version None)
Quarter: 2008Q3

REPORT INFORMATION
  Report Type: 
  Country: None (occurrence: None)
  Receive Date: 20080924
  Receipt Date: 20080915
  Transmission Date: 20090109
  Serious: Yes (Other)
  Sender: FDA-Public Use
  Company Number: PHHY2008FI21403

PATIENT
  Sex: Female
  Weight: 1.1 kg

DRUGS (1)
  1. MIACALCIN [Suspect]
     Indication: HYPERCALCAEMIA
     Dosage: UNK
     Route: 064
     Dates: start: 20080901

REACTIONS (6)
  - DRUG EXPOSURE DURING PREGNANCY [None]
  - HYPERCALCAEMIA [None]
  - LUNG DISORDER [None]
  - PREMATURE BABY [None]
  - SHOULDER DYSTOCIA [None]
  - SMALL FOR DATES BABY [None]
